FAERS Safety Report 24570596 (Version 1)
Quarter: 2024Q4

REPORT INFORMATION
  Report Type: Spontaneous
  Country: US (occurrence: US)
  Receive Date: 20241031
  Receipt Date: 20241031
  Transmission Date: 20250115
  Serious: Yes (Death, Other)
  Sender: GILEAD
  Company Number: US-GILEAD-2024-0692395

PATIENT
  Sex: Male

DRUGS (6)
  1. SOFOSBUVIR\VELPATASVIR [Suspect]
     Active Substance: SOFOSBUVIR\VELPATASVIR
     Indication: Chronic hepatitis C
     Dosage: TAKE 1 TABLET BY MOUTH ONCE DAILY WITH OR WITHOUT FOOD
     Route: 048
  2. GABAPENTIN [Concomitant]
     Active Substance: GABAPENTIN
  3. PAROXETINE [Concomitant]
     Active Substance: PAROXETINE
  4. BACLOFEN [Concomitant]
     Active Substance: BACLOFEN
  5. TRAZODONE HYDROCHLORIDE [Concomitant]
     Active Substance: TRAZODONE HYDROCHLORIDE
  6. BUPRENORPHINE HYDROCHLORIDE [Concomitant]
     Active Substance: BUPRENORPHINE HYDROCHLORIDE

REACTIONS (3)
  - Quadriplegia [Fatal]
  - Chronic obstructive pulmonary disease [Fatal]
  - Coronary artery disease [Fatal]
